FAERS Safety Report 5704878-0 (Version None)
Quarter: 2008Q2

REPORT INFORMATION
  Report Type: 
  Country: None (occurrence: None)
  Receive Date: 20080414
  Receipt Date: 20080318
  Transmission Date: 20081010
  Serious: No
  Sender: FDA-Public Use
  Company Number: US-BOEHRINGER INGELHEIM GMBH, GERMANY-2008-BP-04150BP

PATIENT
  Age: 10 Year
  Sex: Male

DRUGS (4)
  1. CATAPRES-TTS-1 [Suspect]
     Indication: AFFECTIVE DISORDER
     Route: 061
     Dates: start: 20070701
  2. CATAPRES-TTS-1 [Suspect]
     Indication: ANXIETY
  3. CONCERTA [Concomitant]
  4. ZYPREXA [Concomitant]

REACTIONS (2)
  - ERYTHEMA [None]
  - SKIN BURNING SENSATION [None]
